FAERS Safety Report 8202204-9 (Version None)
Quarter: 2012Q1

REPORT INFORMATION
  Report Type: 
  Country: None (occurrence: None)
  Receive Date: 20120312
  Receipt Date: 20120305
  Transmission Date: 20120608
  Serious: Yes (Hospitalization)
  Sender: FDA-Public Use
  Company Number: FR-BRISTOL-MYERS SQUIBB COMPANY-16306797

PATIENT
  Age: 51 Year
  Sex: Female
  Weight: 95 kg

DRUGS (8)
  1. ASPIRIN [Concomitant]
     Indication: PERIPHERAL ARTERIAL OCCLUSIVE DISEASE
     Dates: start: 20090313
  2. NOVORAPID [Concomitant]
     Indication: DIABETES MELLITUS
     Dates: start: 20060101
  3. GEMCITABINE HYDROCHLORIDE [Suspect]
     Indication: NON-SMALL CELL LUNG CANCER
     Dosage: 2500MG:19OCT-08DEC11(TD:42DYS) 2300MG:30NOV-30NOV11(TD:1DY) LAST INF:30NOV11 VIAL,RESTAT 30DEC11
     Route: 042
     Dates: start: 20111019
  4. METFORMIN HCL [Concomitant]
     Indication: DIABETES MELLITUS
     Dates: start: 20070412
  5. ATORVASTATIN [Concomitant]
     Indication: HYPERCHOLESTEROLAEMIA
     Dates: start: 20090313
  6. LANTUS [Concomitant]
     Indication: DIABETES MELLITUS
     Dates: start: 20060101
  7. CISPLATIN [Suspect]
     Indication: NON-SMALL CELL LUNG CANCER
     Dosage: 19OCT-08DEC11:150MG(TD:42DYS) 30NOV-30NOV11,135MG(TD:1DY) LAST INF:30NOV11 RESTAT 30DEC11
     Route: 042
     Dates: start: 20111019
  8. NICARDIPINE HYDROCHLORIDE [Concomitant]
     Indication: HYPERTENSION
     Dates: start: 20111119

REACTIONS (3)
  - NAUSEA [None]
  - MEDICATION ERROR [None]
  - GENERAL PHYSICAL HEALTH DETERIORATION [None]
